FAERS Safety Report 6973242-9 (Version None)
Quarter: 2010Q3

REPORT INFORMATION
  Report Type: 
  Country: None (occurrence: None)
  Receive Date: 20100909
  Receipt Date: 20100831
  Transmission Date: 20110219
  Serious: Yes (Other)
  Sender: FDA-Public Use
  Company Number: NL-JNJFOC-20100902482

PATIENT
  Age: 69 Year
  Sex: Female

DRUGS (1)
  1. SODIUM/POTASSIUM PHOSPHATE [Suspect]
     Indication: BOWEL PREPARATION
     Route: 048

REACTIONS (2)
  - BLOOD PHOSPHORUS INCREASED [None]
  - BLOOD POTASSIUM DECREASED [None]
